FAERS Safety Report 19490249 (Version 3)
Quarter: 2021Q3

REPORT INFORMATION
  Report Type: Report from Study
  Country: GB (occurrence: GB)
  Receive Date: 20210705
  Receipt Date: 20210831
  Transmission Date: 20211014
  Serious: Yes (Other)
  Sender: FDA-Public Use
  Company Number: GB-UCBSA-2021030833

PATIENT
  Sex: Female

DRUGS (1)
  1. CERTOLIZUMAB PEGOL JIA AUTOCLICKS [Suspect]
     Active Substance: CERTOLIZUMAB PEGOL
     Indication: JUVENILE IDIOPATHIC ARTHRITIS
     Dosage: 200 MILLIGRAM, EV 2 WEEKS(QOW)
     Route: 058

REACTIONS (5)
  - Infection [Unknown]
  - Musculoskeletal stiffness [Unknown]
  - Surgery [Unknown]
  - Product use issue [Unknown]
  - Product use in unapproved indication [Unknown]
